FAERS Safety Report 4318959-X (Version None)
Quarter: 2004Q1

REPORT INFORMATION
  Report Type: 
  Country: None (occurrence: None)
  Receive Date: 20040315
  Receipt Date: 20040310
  Transmission Date: 20041129
  Serious: Yes (Other)
  Sender: FDA-Public Use
  Company Number: 200403129

PATIENT
  Age: 60 Year
  Sex: Female

DRUGS (12)
  1. TYLENOL [Suspect]
     Indication: PAIN
     Dosage: 1300 MG ONCE PO
     Route: 048
     Dates: start: 20040301, end: 20040301
  2. SYNTHROID [Concomitant]
  3. ASPIRIN [Concomitant]
  4. ENTEX LA (GUIAFENESIN/PSEUDOEPHEDRINE) [Concomitant]
  5. NAPROXEN [Concomitant]
  6. PREMARIN [Concomitant]
  7. LISINOPRIL [Concomitant]
  8. LOZOL [Concomitant]
  9. ZOCOR [Concomitant]
  10. NASONEX [Concomitant]
  11. CLARINEX [Concomitant]
  12. ACIPHEX [Concomitant]

REACTIONS (2)
  - PRURITUS [None]
  - URTICARIA [None]
